FAERS Safety Report 6622292-0 (Version None)
Quarter: 2010Q1

REPORT INFORMATION
  Report Type: 
  Country: None (occurrence: None)
  Receive Date: 20100310
  Receipt Date: 20100223
  Transmission Date: 20100710
  Serious: Yes (Hospitalization, Disabling)
  Sender: FDA-Public Use
  Company Number: US-ELI_LILLY_AND_COMPANY-US201002007369

PATIENT
  Sex: Female

DRUGS (8)
  1. FORTEO [Suspect]
     Indication: OSTEOPOROSIS
     Dosage: 20 UG, DAILY (1/D)
     Dates: start: 20090101, end: 20100117
  2. HYDROCODONE [Concomitant]
  3. OMEPRAZOLE [Concomitant]
  4. SINGULAIR [Concomitant]
  5. LEVOTHYROXINE [Concomitant]
     Indication: THYROID DISORDER
  6. FUROSEMIDE [Concomitant]
  7. ASPIRIN [Concomitant]
  8. METOPROLOL [Concomitant]
     Indication: BLOOD PRESSURE

REACTIONS (2)
  - ABASIA [None]
  - VISUAL IMPAIRMENT [None]
